FAERS Safety Report 5509680-0 (Version None)
Quarter: 2007Q4

REPORT INFORMATION
  Report Type: 
  Country: None (occurrence: None)
  Receive Date: 20071107
  Receipt Date: 20071107
  Transmission Date: 20080405
  Serious: Yes (Hospitalization)
  Sender: FDA-Public Use
  Company Number: None

PATIENT
  Age: 76 Year
  Sex: Male
  Weight: 130.6359 kg

DRUGS (17)
  1. WARFARIN SODIUM [Suspect]
     Indication: ATRIAL FLUTTER
     Dosage: 25 MG PER WEEK PO
     Route: 048
     Dates: start: 20070104, end: 20070218
  2. HYDROCHLOROTHIAZIDE [Concomitant]
  3. COMBIVENT [Concomitant]
  4. LEVALBUTEROL MDI [Concomitant]
  5. METOPROLOL TARTRATE [Concomitant]
  6. FLUOCINOLONE OINTMENT [Concomitant]
  7. GEMFIBROZIL [Concomitant]
  8. VICODIN [Concomitant]
  9. RANITIDINE [Concomitant]
  10. SIMVASTATIN [Concomitant]
  11. ALLOPURINOL [Concomitant]
  12. ROBITUSSIN AC SYRUP [Concomitant]
  13. GUAIFENESIN SA [Concomitant]
  14. PREDNISONE TAB [Concomitant]
  15. KAYEXALATE [Concomitant]
  16. DIGOXIN [Concomitant]
  17. LISINOPRIL [Concomitant]

REACTIONS (6)
  - ATRIAL FLUTTER [None]
  - CARDIAC FAILURE CONGESTIVE [None]
  - GASTROINTESTINAL HAEMORRHAGE [None]
  - INTERNATIONAL NORMALISED RATIO INCREASED [None]
  - PLEURAL EFFUSION [None]
  - PULMONARY OEDEMA [None]
